FAERS Safety Report 21234384 (Version 3)
Quarter: 2022Q3

REPORT INFORMATION
  Report Type: Report from Study
  Country: DE (occurrence: DE)
  Receive Date: 20220819
  Receipt Date: 20220912
  Transmission Date: 20221027
  Serious: Yes (Hospitalization)
  Sender: FDA-Public Use
  Company Number: DE-ABBVIE-22P-062-4482607-00

PATIENT
  Age: 62 Year
  Sex: Male
  Weight: 68.7 kg

DRUGS (22)
  1. LEMZOPARLIMAB [Suspect]
     Active Substance: LEMZOPARLIMAB
     Indication: Acute myeloid leukaemia
     Dosage: ON DAYS 1, 8, 15, AND 22 OF A 28-DAY CYCLE
     Route: 042
     Dates: start: 20220627, end: 20220718
  2. LEMZOPARLIMAB [Suspect]
     Active Substance: LEMZOPARLIMAB
     Dosage: ON DAYS 1, 8, 15, AND 22 OF A 28-DAY CYCLE
     Route: 042
     Dates: start: 20220802
  3. VENETOCLAX [Suspect]
     Active Substance: VENETOCLAX
     Indication: Acute myeloid leukaemia
     Dosage: DURING EACH 28-DAY TREATMENT CYCLE
     Route: 048
     Dates: start: 20220620, end: 20220725
  4. VENETOCLAX [Suspect]
     Active Substance: VENETOCLAX
     Dosage: DURING EACH 28-DAY TREATMENT CYCLE
     Route: 048
     Dates: start: 20220801
  5. AZACITIDINE [Suspect]
     Active Substance: AZACITIDINE
     Indication: Acute myeloid leukaemia
     Dosage: FOR 7 DAYS WITHIN THE FIRST 9 CALENDAR DAYS OF EACH 28-DAY CYCLE
     Route: 058
     Dates: start: 20220620, end: 20220722
  6. AZACITIDINE [Suspect]
     Active Substance: AZACITIDINE
     Dosage: FOR 7 DAYS WITHIN THE FIRST 9 CALENDAR DAYS OF EACH 28-DAY CYCLE
     Route: 058
     Dates: start: 20220802
  7. ALLOPURINOL [Concomitant]
     Active Substance: ALLOPURINOL
     Indication: Hypertension
     Route: 048
     Dates: start: 2017
  8. TROSPIUM CHLORIDE [Concomitant]
     Active Substance: TROSPIUM CHLORIDE
     Indication: Benign prostatic hyperplasia
     Route: 048
     Dates: start: 2015
  9. VALSARTAN [Concomitant]
     Active Substance: VALSARTAN
     Indication: Hypertension
     Route: 048
     Dates: start: 2012
  10. LYRICA [Concomitant]
     Active Substance: PREGABALIN
     Indication: Post laminectomy syndrome
     Route: 048
     Dates: start: 20220607
  11. AMITRIPTYLINE HYDROCHLORIDE [Concomitant]
     Active Substance: AMITRIPTYLINE HYDROCHLORIDE
     Indication: Post laminectomy syndrome
     Route: 048
     Dates: start: 20220607
  12. SYMBICORT [Concomitant]
     Active Substance: BUDESONIDE\FORMOTEROL FUMARATE DIHYDRATE
     Indication: Chronic obstructive pulmonary disease
     Dosage: 160/4.5 UG
     Route: 048
     Dates: start: 2015
  13. POSACONAZOLE [Concomitant]
     Active Substance: POSACONAZOLE
     Indication: Antifungal prophylaxis
     Route: 048
     Dates: start: 20220618
  14. ACYCLOVIR [Concomitant]
     Active Substance: ACYCLOVIR
     Indication: Antiviral prophylaxis
     Route: 048
     Dates: start: 20220629
  15. SULFAMETHOXAZOLE\TRIMETHOPRIM [Concomitant]
     Active Substance: SULFAMETHOXAZOLE\TRIMETHOPRIM
     Indication: Infection prophylaxis
     Route: 048
     Dates: start: 20220704
  16. TAMSULOSIN [Concomitant]
     Active Substance: TAMSULOSIN
     Indication: Urinary retention
     Route: 048
     Dates: start: 20220729
  17. POTASSIUM CHLORIDE [Concomitant]
     Active Substance: POTASSIUM CHLORIDE
     Indication: Hypokalaemia
     Route: 048
     Dates: start: 20220819, end: 20220828
  18. SODIUM PICOSULFATE [Concomitant]
     Active Substance: SODIUM PICOSULFATE
     Indication: Haematoma
     Route: 048
     Dates: start: 20220816
  19. ESPUMISAN EMULSION [Concomitant]
     Indication: Haematoma
     Route: 048
     Dates: start: 20220816
  20. HYDROMORPHON RETARD [Concomitant]
     Indication: Haematoma
     Route: 048
     Dates: start: 20220818
  21. PLATELETS [Concomitant]
     Active Substance: HUMAN PLATELET, ALLOGENIC
     Indication: Neutropenia
     Dates: start: 20220607, end: 20220803
  22. HUMAN RED BLOOD CELL [Concomitant]
     Active Substance: HUMAN RED BLOOD CELL
     Indication: Anaemia
     Dates: start: 20220608, end: 20220731

REACTIONS (2)
  - Pseudomonal sepsis [Recovered/Resolved]
  - Wound dehiscence [Recovered/Resolved]

NARRATIVE: CASE EVENT DATE: 20220725
